FAERS Safety Report 7022352-9 (Version None)
Quarter: 2010Q3

REPORT INFORMATION
  Report Type: 
  Country: None (occurrence: None)
  Receive Date: 20100930
  Receipt Date: 20100915
  Transmission Date: 20110219
  Serious: Yes (Death)
  Sender: FDA-Public Use
  Company Number: JP-ROCHE-673582

PATIENT
  Age: 6 Year
  Sex: Male

DRUGS (2)
  1. TAMIFLU [Suspect]
     Indication: INFLUENZA
     Dosage: DOSE FORM: PERORAL AGENT, STOP DATE : 2009.
     Route: 048
     Dates: start: 20091124
  2. RELENZA [Concomitant]
     Dosage: FORM: RESPIRATORY TONIC, DOSAGE IS UNCERTAIN
     Route: 055

REACTIONS (2)
  - ACUTE RESPIRATORY DISTRESS SYNDROME [None]
  - PNEUMONIA [None]
